FAERS Safety Report 9345857 (Version 2)
Quarter: 2013Q4

REPORT INFORMATION
  Report Type: Spontaneous
  Country: FR (occurrence: FR)
  Receive Date: 20130613
  Receipt Date: 20131213
  Transmission Date: 20140711
  Serious: Yes (Disabling)
  Sender: FDA-Public Use
  Company Number: FR-ASTRAZENECA-2013SE41705

PATIENT
  Age: 0 Day
  Sex: Male
  Weight: 2.8 kg

DRUGS (7)
  1. ATACAND [Suspect]
     Indication: HYPERTENSION
     Route: 064
     Dates: start: 20130110, end: 20130118
  2. AMLOR [Suspect]
     Indication: HYPERTENSION
     Route: 064
     Dates: start: 20130110, end: 20130118
  3. ATRIPLA [Suspect]
     Indication: HIV INFECTION
     Route: 064
     Dates: start: 20110510, end: 20130306
  4. TRUVADA [Suspect]
     Indication: HIV INFECTION
     Route: 064
     Dates: start: 20130307
  5. KALETRA [Suspect]
     Indication: HIV INFECTION
     Route: 064
     Dates: start: 20130307
  6. LOXEN LP [Concomitant]
     Indication: HYPERTENSION
     Route: 064
     Dates: start: 20130119
  7. ROPHYLAC [Concomitant]
     Dosage: ONCE ADMINISTRATION
     Route: 064
     Dates: start: 20130222

REACTIONS (2)
  - Congenital bowing of long bones [Not Recovered/Not Resolved]
  - Limb reduction defect [Not Recovered/Not Resolved]
